FAERS Safety Report 7803339 (Version 2)
Quarter: 2013Q4

REPORT INFORMATION
  Report Type: Spontaneous
  Country: US (occurrence: US)
  Receive Date: 20110208
  Receipt Date: 20131203
  Transmission Date: 20140711
  Serious: Yes (Other)
  Sender: FDA-Public Use
  Company Number: US-BAYER-2011-011306

PATIENT
  Age: 45 Year
  Sex: Female

DRUGS (8)
  1. YAZ [Suspect]
  2. YASMIN [Suspect]
  3. VESICARE [Concomitant]
     Indication: URINARY INCONTINENCE
     Dosage: 5 MG, UNK
     Dates: start: 20090216
  4. XANAX [Concomitant]
     Indication: ANXIETY
     Dosage: 5 MG, QD
     Dates: start: 20090216
  5. ALPRAZOLAM [Concomitant]
     Dosage: 0.5 MG, UNK
     Dates: start: 20081226, end: 20090228
  6. SYNTHROID [Concomitant]
     Dosage: 150 MCG
     Dates: start: 20081230, end: 20090309
  7. SOMA [Concomitant]
     Indication: MUSCLE SPASMS
  8. MOBIC [Concomitant]

REACTIONS (2)
  - Deep vein thrombosis [Recovered/Resolved]
  - Pain [Recovered/Resolved]
